FAERS Safety Report 9009356 (Version 5)
Quarter: 2014Q1

REPORT INFORMATION
  Report Type: Report from Study
  Country: FR (occurrence: FR)
  Receive Date: 20130111
  Receipt Date: 20140226
  Transmission Date: 20141002
  Serious: Yes (Hospitalization)
  Sender: FDA-Public Use
  Company Number: FR-MILLENNIUM PHARMACEUTICALS, INC.-2013-00154

PATIENT
  Sex: 0

DRUGS (8)
  1. VELCADE [Suspect]
     Indication: MANTLE CELL LYMPHOMA
     Dosage: 1.3 MG, UNK
     Route: 042
     Dates: start: 20121003, end: 20121214
  2. VELCADE [Suspect]
     Dosage: 1.3 MG, UNK
     Route: 042
     Dates: start: 20121214
  3. MABTHERA [Suspect]
     Indication: MANTLE CELL LYMPHOMA
     Dosage: 750 MG, UNK
     Route: 042
     Dates: start: 20121002, end: 20121203
  4. LEVACT [Suspect]
     Indication: MANTLE CELL LYMPHOMA
     Dosage: 125 MG, UNK
     Route: 042
     Dates: start: 20121002, end: 20121205
  5. LEVACT [Suspect]
     Dosage: 125 MG, UNK
     Route: 042
     Dates: start: 20121205
  6. DEXAMETHASONE [Suspect]
     Indication: MANTLE CELL LYMPHOMA
     Dosage: 40 MG, UNK
     Route: 042
     Dates: start: 20121003, end: 20121205
  7. DEXAMETHASONE [Suspect]
     Dosage: 40 MG, UNK
     Route: 042
     Dates: start: 20121005
  8. ORACILLINE [Suspect]
     Indication: PRODUCT USED FOR UNKNOWN INDICATION
     Dosage: UNK
     Route: 065

REACTIONS (1)
  - Clostridial infection [Recovered/Resolved]
